FAERS Safety Report 7488450-0 (Version None)
Quarter: 2011Q2

REPORT INFORMATION
  Report Type: 
  Country: None (occurrence: None)
  Receive Date: 20110518
  Receipt Date: 20101020
  Transmission Date: 20111010
  Serious: Yes (Hospitalization)
  Sender: FDA-Public Use
  Company Number: US-BAYER-201020595NA

PATIENT
  Age: 19 Year
  Sex: Female
  Weight: 80.909 kg

DRUGS (1)
  1. YAZ [Suspect]
     Indication: CONTRACEPTION
     Dosage: PHARMACY RECORDS: YAZ WAS REFILLED ON 07 MAY 2007, 06 JUN 2007 AND 27 JUN 2007.
     Route: 048
     Dates: start: 20070401, end: 20070706

REACTIONS (7)
  - DEEP VEIN THROMBOSIS [None]
  - EMOTIONAL DISTRESS [None]
  - PAIN IN EXTREMITY [None]
  - PAIN [None]
  - PULMONARY EMBOLISM [None]
  - VENA CAVA THROMBOSIS [None]
  - CHEST PAIN [None]
